FAERS Safety Report 8791101 (Version 1)
Quarter: 2012Q4

REPORT INFORMATION
  Report Type: Spontaneous
  Country: US (occurrence: None)
  Receive Date: 20120911
  Receipt Date: 20120911
  Transmission Date: 20130627
  Serious: Yes (Life-Threatening)
  Sender: FDA-Public Use
  Company Number: 2012P1055781

PATIENT
  Age: 63 Year
  Sex: Female

DRUGS (5)
  1. TWINJECT [Suspect]
     Indication: PERFUME SENSITIVITY
     Route: 030
     Dates: start: 20120826, end: 20120826
  2. TWINJECT [Suspect]
     Indication: ANAPHYLACTIC REACTION
     Route: 030
     Dates: start: 20120826, end: 20120826
  3. VENTOLIN [Concomitant]
  4. CLARITIN [Concomitant]
  5. BENADRYL [Concomitant]

REACTIONS (1)
  - Device failure [None]
